FAERS Safety Report 24760464 (Version 1)
Quarter: 2024Q4

REPORT INFORMATION
  Report Type: Report from Study
  Country: CA (occurrence: CA)
  Receive Date: 20241220
  Receipt Date: 20241220
  Transmission Date: 20250114
  Serious: Yes (Death, Other)
  Sender: GLAXOSMITHKLINE
  Company Number: CA-GSK-CA2024103885

PATIENT

DRUGS (3)
  1. MEPOLIZUMAB [Suspect]
     Active Substance: MEPOLIZUMAB
     Indication: Asthma
     Dosage: 100 MG, Q4W
     Route: 058
     Dates: start: 20240709, end: 20241217
  2. Reactine [Concomitant]
     Indication: Product used for unknown indication
     Dosage: UNK
     Dates: start: 20241001
  3. VENTOLIN [Concomitant]
     Active Substance: ALBUTEROL SULFATE
     Indication: Product used for unknown indication
     Dosage: UNK

REACTIONS (7)
  - Death [Fatal]
  - Fatigue [Unknown]
  - Decreased appetite [Unknown]
  - Dyspnoea [Unknown]
  - Pruritus [Unknown]
  - Rash [Unknown]
  - Drug effect less than expected [Unknown]

NARRATIVE: CASE EVENT DATE: 20240903
